FAERS Safety Report 7543139-4 (Version None)
Quarter: 2011Q2

REPORT INFORMATION
  Report Type: 
  Country: None (occurrence: None)
  Receive Date: 20110613
  Receipt Date: 20110613
  Transmission Date: 20111010
  Serious: Yes (Hospitalization)
  Sender: FDA-Public Use
  Company Number: PHHO2008CA06058

PATIENT
  Sex: Female
  Weight: 79 kg

DRUGS (1)
  1. IMATINIB MESYLATE [Suspect]
     Indication: SCLERODERMA
     Route: 048
     Dates: start: 20080424, end: 20080501

REACTIONS (4)
  - RASH [None]
  - MALAISE [None]
  - ASTHENIA [None]
  - OEDEMA PERIPHERAL [None]
